FAERS Safety Report 6248565-1 (Version None)
Quarter: 2009Q2

REPORT INFORMATION
  Report Type: 
  Country: None (occurrence: None)
  Receive Date: 20090624
  Receipt Date: 20090624
  Transmission Date: 20091009
  Serious: Yes (Life-Threatening)
  Sender: FDA-Public Use
  Company Number: None

PATIENT
  Age: 58 Year
  Sex: Female
  Weight: 87 kg

DRUGS (9)
  1. HYDROMORPHONE HCL [Suspect]
     Indication: PAIN
     Dosage: 4MG PO Q4H PRN
     Route: 048
     Dates: start: 20090420, end: 20090425
  2. HEPARIN [Concomitant]
  3. ASCORBIC ACID [Concomitant]
  4. CLONAZEPAM [Concomitant]
  5. INSULIN [Concomitant]
  6. M.V.I. [Concomitant]
  7. NYSTATIN/ TRIAMCINOLONE [Concomitant]
  8. SERTRALINE [Concomitant]
  9. ZINC SULFATE [Concomitant]

REACTIONS (2)
  - LETHARGY [None]
  - UNRESPONSIVE TO STIMULI [None]
